FAERS Safety Report 5288845-X (Version None)
Quarter: 2007Q2

REPORT INFORMATION
  Report Type: 
  Country: None (occurrence: None)
  Receive Date: 20070405
  Receipt Date: 20061011
  Transmission Date: 20071010
  Serious: Yes (Hospitalization)
  Sender: FDA-Public Use
  Company Number: GB-MERCK-0609GBR00115

PATIENT
  Age: 59 Year
  Sex: Female

DRUGS (9)
  1. ZETIA [Suspect]
     Indication: BLOOD CHOLESTEROL INCREASED
     Route: 048
     Dates: start: 20060921, end: 20060924
  2. OMEPRAZOLE [Concomitant]
     Route: 065
  3. ASPIRIN [Concomitant]
     Route: 048
  4. NITROGLYCERIN [Concomitant]
     Route: 065
  5. ACETAMINOPHEN [Concomitant]
     Route: 048
  6. HYDROCORTISONE ACETATE [Concomitant]
     Route: 065
  7. SENNA [Concomitant]
     Route: 048
  8. FUROSEMIDE [Concomitant]
     Route: 048
  9. PERINDOPRIL [Concomitant]
     Route: 048

REACTIONS (4)
  - DYSPNOEA [None]
  - HYPERSENSITIVITY [None]
  - MALAISE [None]
  - RASH [None]
